FAERS Safety Report 8408219-X (Version None)
Quarter: 2012Q2

REPORT INFORMATION
  Report Type: 
  Country: None (occurrence: None)
  Receive Date: 20120604
  Receipt Date: 20120524
  Transmission Date: 20120825
  Serious: Yes (Hospitalization)
  Sender: FDA-Public Use
  Company Number: JP-ELI_LILLY_AND_COMPANY-JP201202008153

PATIENT
  Age: 75 Year
  Sex: Female

DRUGS (1)
  1. FORTEO [Suspect]
     Dosage: UNK
     Route: 058

REACTIONS (5)
  - THORACIC VERTEBRAL FRACTURE [None]
  - INJECTION SITE HAEMATOMA [None]
  - DECREASED APPETITE [None]
  - HYPOGEUSIA [None]
  - VERTIGO [None]
